FAERS Safety Report 7421272-5 (Version None)
Quarter: 2011Q2

REPORT INFORMATION
  Report Type: 
  Country: None (occurrence: None)
  Receive Date: 20110418
  Receipt Date: 20110406
  Transmission Date: 20111010
  Serious: Yes (Hospitalization, Disabling, Other)
  Sender: FDA-Public Use
  Company Number: US-MERCK-1011USA01580

PATIENT
  Age: 57 Year
  Sex: Female

DRUGS (1)
  1. FOSAMAX [Suspect]
     Indication: OSTEOPENIA
     Route: 048
     Dates: start: 19980101, end: 20080101

REACTIONS (18)
  - LACTOSE INTOLERANCE [None]
  - ALLERGY TO ANIMAL [None]
  - INTRACRANIAL ANEURYSM [None]
  - PHOTOPSIA [None]
  - GASTROOESOPHAGEAL REFLUX DISEASE [None]
  - OSTEOPOROSIS [None]
  - JOINT SWELLING [None]
  - MUSCLE SPASMS [None]
  - ARTHRITIS [None]
  - FATIGUE [None]
  - FEMUR FRACTURE [None]
  - SEASONAL ALLERGY [None]
  - MYCOTIC ALLERGY [None]
  - HIATUS HERNIA [None]
  - LOW TURNOVER OSTEOPATHY [None]
  - HYPOKALAEMIA [None]
  - HYPERSENSITIVITY [None]
  - FALL [None]
